FAERS Safety Report 8383435-4 (Version None)
Quarter: 2012Q2

REPORT INFORMATION
  Report Type: 
  Country: None (occurrence: None)
  Receive Date: 20120524
  Receipt Date: 20120521
  Transmission Date: 20120825
  Serious: Yes (Other)
  Sender: FDA-Public Use
  Company Number: US-AMGEN-USASP2012031653

PATIENT

DRUGS (1)
  1. ENBREL [Suspect]
     Dosage: UNK
     Route: 064
     Dates: end: 20080101

REACTIONS (3)
  - NEONATAL RESPIRATORY DISTRESS SYNDROME [None]
  - JAUNDICE NEONATAL [None]
  - PREMATURE BABY [None]
